FAERS Safety Report 6795467-8 (Version None)
Quarter: 2010Q2

REPORT INFORMATION
  Report Type: 
  Country: None (occurrence: None)
  Receive Date: 20100625
  Receipt Date: 20100615
  Transmission Date: 20101027
  Serious: Yes (Hospitalization)
  Sender: FDA-Public Use
  Company Number: CA-JNJFOC-20100605850

PATIENT
  Age: 57 Year
  Sex: Female
  Weight: 66 kg

DRUGS (8)
  1. REMICADE [Suspect]
     Indication: RHEUMATOID ARTHRITIS
     Dosage: EVERY 6-8 WEEKS; 12 INFUSIONS TO DATE
     Route: 042
  2. REMICADE [Suspect]
     Route: 042
  3. REMICADE [Suspect]
     Dosage: EVERY 6-8 WEEKS
     Route: 042
  4. DICLOFENAC SODIUM SR [Suspect]
     Indication: RHEUMATOID ARTHRITIS
     Route: 048
  5. ALENDRONATE [Concomitant]
     Route: 048
  6. PLAQUENIL [Concomitant]
     Indication: RHEUMATOID ARTHRITIS
     Route: 048
  7. LOSEC I.V. [Concomitant]
     Route: 048
  8. FOLIC ACID [Concomitant]

REACTIONS (2)
  - NON-CARDIAC CHEST PAIN [None]
  - PALPITATIONS [None]
